FAERS Safety Report 5027873-6 (Version None)
Quarter: 2006Q2

REPORT INFORMATION
  Report Type: 
  Country: None (occurrence: None)
  Receive Date: 20060616
  Receipt Date: 20060605
  Transmission Date: 20061013
  Serious: Yes (Hospitalization)
  Sender: FDA-Public Use
  Company Number: AU-ROCHE-450506

PATIENT
  Age: 65 Year
  Sex: Female

DRUGS (2)
  1. CAPECITABINE [Suspect]
     Dosage: DAYS 1-14 EVERY THREE WEEKS
     Route: 065
     Dates: start: 20050902
  2. AVASTIN [Suspect]
     Dosage: FREQUENCY AS PER PROTOCOL
     Route: 042
     Dates: start: 20050902

REACTIONS (3)
  - BLOOD CREATININE INCREASED [None]
  - PALMAR-PLANTAR ERYTHRODYSAESTHESIA SYNDROME [None]
  - PROTEINURIA [None]
